FAERS Safety Report 8638841 (Version 3)
Quarter: 2012Q4

REPORT INFORMATION
  Report Type: 
  Country: US (occurrence: US)
  Receive Date: 20120627
  Receipt Date: 20121019
  Transmission Date: 20130627
  Serious: Yes (Death, Hospitalization)
  Sender: FDA-Public Use
  Company Number: US-BRISTOL-MYERS SQUIBB COMPANY-16705964

PATIENT
  Age: 49 Year
  Sex: Female

DRUGS (2)
  1. YERVOY [Suspect]
     Indication: MALIGNANT MELANOMA
     Dosage: Wk 1,4,7,10. 244mg(3mg/kg).1,14May2012 Interrupted on 4Jun2:50mg/10mL
200mg/40mL,Exp.4/2014,5mg/ml
     Route: 042
     Dates: start: 20120514, end: 20120514
  2. YERVOY [Suspect]
     Indication: LUNG NEOPLASM
     Dosage: Wk 1,4,7,10. 244mg(3mg/kg).1,14May2012 Interrupted on 4Jun2:50mg/10mL
200mg/40mL,Exp.4/2014,5mg/ml
     Route: 042
     Dates: start: 20120514, end: 20120514

REACTIONS (1)
  - Malignant neoplasm progression [Fatal]
